FAERS Safety Report 5993334-0 (Version None)
Quarter: 2008Q4

REPORT INFORMATION
  Report Type: 
  Country: None (occurrence: None)
  Receive Date: 20081210
  Receipt Date: 20081210
  Transmission Date: 20090506
  Serious: No
  Sender: FDA-Public Use
  Company Number: None

PATIENT
  Sex: Female
  Weight: 64.55 kg

DRUGS (10)
  1. TRAMADOL HCL [Suspect]
     Dosage: 50 MG TABLET 25 MG Q4-6H ORAL
     Route: 048
     Dates: start: 20081105, end: 20081209
  2. ATENOLOL [Concomitant]
  3. CARDURA [Concomitant]
  4. COUMADIN [Concomitant]
  5. POTASSIUM CHLORIDE [Concomitant]
  6. LASIX [Concomitant]
  7. LIDODERM [Concomitant]
  8. OYSTER SHELL CALCIUM [Concomitant]
  9. ZOCOR [Concomitant]
  10. ZOSTAVAX (ZOSTER VACCINE LIVE (PF)) [Concomitant]

REACTIONS (1)
  - NAUSEA [None]
